FAERS Safety Report 5030953-2 (Version None)
Quarter: 2006Q2

REPORT INFORMATION
  Report Type: 
  Country: None (occurrence: None)
  Receive Date: 20060504
  Receipt Date: 20060213
  Transmission Date: 20061013
  Serious: No
  Sender: FDA-Public Use
  Company Number: 200610829BWH

PATIENT
  Age: 72 Year
  Sex: Male

DRUGS (7)
  1. LEVITRA [Suspect]
     Indication: ERECTILE DYSFUNCTION
     Dosage: 20 MG, QD, ORAL; 10 MG, QD, ORAL
     Route: 048
     Dates: start: 20060201
  2. LEVITRA [Suspect]
     Indication: ERECTILE DYSFUNCTION
     Dosage: 20 MG, QD, ORAL; 10 MG, QD, ORAL
     Route: 048
     Dates: start: 20060201
  3. WARFARIN SODIUM [Concomitant]
  4. PROPRANOLOL [Concomitant]
  5. LOVASTATIN [Concomitant]
  6. DIOVAN [Concomitant]
  7. MULTIVITAMIN [Concomitant]

REACTIONS (1)
  - DRUG EFFECT PROLONGED [None]
